FAERS Safety Report 16414882 (Version 1)
Quarter: 2019Q3

REPORT INFORMATION
  Report Type: Spontaneous
  Country: US (occurrence: US)
  Receive Date: 20190607
  Receipt Date: 20190607
  Transmission Date: 20191004
  Serious: Yes (Other)
  Sender: FDA-Public Use
  Company Number: None

PATIENT
  Age: 48 Year
  Sex: Female
  Weight: 63 kg

DRUGS (1)
  1. PURELL SANITIZING WIPES [Suspect]
     Active Substance: BENZALKONIUM CHLORIDE
     Indication: INFECTION PROPHYLAXIS
     Dates: start: 20190607, end: 20190607

REACTIONS (2)
  - Application site reaction [None]
  - Skin burning sensation [None]

NARRATIVE: CASE EVENT DATE: 20190607
